FAERS Safety Report 19961935 (Version 5)
Quarter: 2022Q4

REPORT INFORMATION
  Report Type: Report from Study
  Country: US (occurrence: US)
  Receive Date: 20211018
  Receipt Date: 20221028
  Transmission Date: 20230113
  Serious: No
  Sender: FDA-Public Use
  Company Number: NVSC2021US236439

PATIENT
  Sex: Female

DRUGS (2)
  1. XIIDRA [Suspect]
     Active Substance: LIFITEGRAST
     Indication: Product used for unknown indication
     Dosage: UNK
     Route: 065
  2. XIIDRA [Suspect]
     Active Substance: LIFITEGRAST
     Dosage: 50 MG
     Route: 047

REACTIONS (4)
  - Ulcer [Unknown]
  - Sinusitis [Unknown]
  - Malaise [Unknown]
  - Illness [Unknown]
